FAERS Safety Report 6329711-8 (Version None)
Quarter: 2009Q3

REPORT INFORMATION
  Report Type: 
  Country: None (occurrence: None)
  Receive Date: 20090826
  Receipt Date: 20090818
  Transmission Date: 20100115
  Serious: Yes (Hospitalization, Other)
  Sender: FDA-Public Use
  Company Number: US-AMGEN-QUU358510

PATIENT
  Sex: Female
  Weight: 79 kg

DRUGS (7)
  1. ENBREL [Suspect]
     Indication: RHEUMATOID ARTHRITIS
     Route: 058
     Dates: start: 20050501
  2. PLAQUENIL [Concomitant]
  3. METHOTREXATE [Concomitant]
     Route: 048
  4. NEURONTIN [Concomitant]
  5. FOSAMAX [Concomitant]
  6. LEUCOVORIN CALCIUM [Concomitant]
  7. FLEXIN [Concomitant]

REACTIONS (7)
  - ARTHRALGIA [None]
  - CHONDROPATHY [None]
  - GAIT DISTURBANCE [None]
  - HYPOAESTHESIA [None]
  - KNEE ARTHROPLASTY [None]
  - MUSCULAR WEAKNESS [None]
  - UPPER LIMB FRACTURE [None]
